FAERS Safety Report 14264322 (Version 2)
Quarter: 2022Q2

REPORT INFORMATION
  Report Type: Report from Study
  Country: US (occurrence: US)
  Receive Date: 20171208
  Receipt Date: 20220419
  Transmission Date: 20220720
  Serious: Yes (Other)
  Sender: FDA-Public Use
  Company Number: US-JAZZ-2017-US-012005

PATIENT
  Sex: Female
  Weight: 112.7 kg

DRUGS (23)
  1. XYREM [Suspect]
     Active Substance: SODIUM OXYBATE
     Indication: Narcolepsy
     Dosage: 2.25 GRAM, BID
     Route: 048
     Dates: start: 201704, end: 201705
  2. XYREM [Suspect]
     Active Substance: SODIUM OXYBATE
     Indication: Cataplexy
     Dosage: DOSE ADJUSTMENT
     Route: 048
     Dates: start: 201705, end: 2017
  3. XYREM [Suspect]
     Active Substance: SODIUM OXYBATE
     Dosage: 4.5 GRAM, BID
     Route: 048
     Dates: start: 2017
  4. PREDNISONE [Suspect]
     Active Substance: PREDNISONE
     Indication: Product used for unknown indication
  5. RITALIN [Concomitant]
     Active Substance: METHYLPHENIDATE HYDROCHLORIDE
  6. ADDERALL [Concomitant]
     Active Substance: AMPHETAMINE ASPARTATE\AMPHETAMINE SULFATE\DEXTROAMPHETAMINE SACCHARATE\DEXTROAMPHETAMINE SULFATE
  7. DEXEDRINE [Concomitant]
     Active Substance: DEXTROAMPHETAMINE SULFATE
  8. SUNOSI [Concomitant]
     Active Substance: SOLRIAMFETOL
  9. PROVIGIL [Concomitant]
     Active Substance: MODAFINIL
  10. AMBIEN [Concomitant]
     Active Substance: ZOLPIDEM TARTRATE
  11. TEMAZEPAM [Concomitant]
     Active Substance: TEMAZEPAM
  12. TRAZODONE [Concomitant]
     Active Substance: TRAZODONE HYDROCHLORIDE
  13. ALBUTEROL [Concomitant]
     Active Substance: ALBUTEROL
  14. CORLANOR [Concomitant]
     Active Substance: IVABRADINE HYDROCHLORIDE
  15. CYMBALTA [Concomitant]
     Active Substance: DULOXETINE HYDROCHLORIDE
  16. DUONEB [Concomitant]
     Active Substance: ALBUTEROL SULFATE\IPRATROPIUM BROMIDE
     Dosage: 0.5MG-2.5MG/3ML
  17. GABAPENTIN [Concomitant]
     Active Substance: GABAPENTIN
  18. MIDODRINE [Concomitant]
     Active Substance: MIDODRINE
  19. SINGULAIR [Concomitant]
     Active Substance: MONTELUKAST SODIUM
  20. SPIRIVA RESPIMAT [Concomitant]
     Active Substance: TIOTROPIUM BROMIDE
  21. ZOFRAN [Concomitant]
     Active Substance: ONDANSETRON HYDROCHLORIDE
  22. ZOLPIDEM [Concomitant]
     Active Substance: ZOLPIDEM TARTRATE
  23. ZYRTEC [Concomitant]
     Active Substance: CETIRIZINE HYDROCHLORIDE

REACTIONS (5)
  - Suicide attempt [Unknown]
  - Major depression [Unknown]
  - Suicidal ideation [Unknown]
  - Abnormal behaviour [Unknown]
  - Somnambulism [Unknown]

NARRATIVE: CASE EVENT DATE: 20170101
